FAERS Safety Report 10792617 (Version 1)
Quarter: 2015Q1

REPORT INFORMATION
  Report Type: Spontaneous
  Country: FR (occurrence: FR)
  Receive Date: 20150213
  Receipt Date: 20150213
  Transmission Date: 20150721
  Serious: Yes (Life-Threatening)
  Sender: FDA-Public Use
  Company Number: FR-SA-2015SA016388

PATIENT
  Age: 73 Year
  Sex: Male

DRUGS (13)
  1. NEBILOX [Concomitant]
     Active Substance: NEBIVOLOL HYDROCHLORIDE
  2. KARDEGIC [Concomitant]
     Active Substance: ASPIRIN LYSINE
  3. SKENAN [Concomitant]
     Active Substance: MORPHINE SULFATE
  4. LASILIX [Concomitant]
     Active Substance: FUROSEMIDE
  5. LEVOTHYROX [Concomitant]
     Active Substance: LEVOTHYROXINE
  6. ACTISKENAN [Concomitant]
     Active Substance: MORPHINE SULFATE
  7. LOVENOX [Concomitant]
     Active Substance: ENOXAPARIN SODIUM
  8. XATRAL LP [Concomitant]
     Active Substance: ALFUZOSIN
  9. INSPRA [Concomitant]
     Active Substance: EPLERENONE
  10. APROVEL [Suspect]
     Active Substance: IRBESARTAN
     Route: 048
     Dates: start: 2013, end: 20141222
  11. KALEORID [Concomitant]
     Active Substance: POTASSIUM CHLORIDE
  12. BIPERIDYS FLASH [Concomitant]
  13. ELISOR [Concomitant]
     Active Substance: PRAVASTATIN SODIUM

REACTIONS (1)
  - Laryngeal oedema [Unknown]

NARRATIVE: CASE EVENT DATE: 20141221
